FAERS Safety Report 14603004 (Version 1)
Quarter: 2018Q1

REPORT INFORMATION
  Report Type: Report from Study
  Country: US (occurrence: US)
  Receive Date: 20180306
  Receipt Date: 20180306
  Transmission Date: 20180509
  Serious: Yes (Other)
  Sender: FDA-Public Use
  Company Number: US-ROCHE-2081427

PATIENT
  Age: 59 Year
  Sex: Male
  Weight: 79.45 kg

DRUGS (3)
  1. OCREVUS [Suspect]
     Active Substance: OCRELIZUMAB
     Indication: PRIMARY PROGRESSIVE MULTIPLE SCLEROSIS
     Dosage: ONGOING:YES
     Route: 042
     Dates: start: 201708
  2. AMOXICILLIN. [Suspect]
     Active Substance: AMOXICILLIN
     Indication: INFECTION
  3. AMOXICILLIN. [Suspect]
     Active Substance: AMOXICILLIN
     Indication: TOOTH IMPACTED
     Route: 065
     Dates: start: 20180221

REACTIONS (6)
  - Pulmonary oedema [Unknown]
  - Infection [Not Recovered/Not Resolved]
  - Hypersensitivity [Recovered/Resolved]
  - Cough [Not Recovered/Not Resolved]
  - Malaise [Not Recovered/Not Resolved]
  - Tooth impacted [Not Recovered/Not Resolved]

NARRATIVE: CASE EVENT DATE: 201709
